FAERS Safety Report 9261294 (Version 2)
Quarter: 2013Q3

REPORT INFORMATION
  Report Type: Spontaneous
  Country: US (occurrence: US)
  Receive Date: 20130429
  Receipt Date: 20130703
  Transmission Date: 20140515
  Serious: Yes (Other)
  Sender: FDA-Public Use
  Company Number: US-009507513-1304USA015766

PATIENT
  Sex: Male

DRUGS (11)
  1. ISENTRESS [Suspect]
     Indication: HIV INFECTION
     Dosage: 2 DF, QD
     Route: 048
     Dates: start: 1993
  2. VITAMIN A [Concomitant]
  3. VITAMIN E [Concomitant]
  4. EPIVIR [Concomitant]
  5. TANAPRIL [Concomitant]
  6. NIMODIPINE [Concomitant]
  7. FINASTERIDE [Concomitant]
     Route: 048
  8. LIPITOR [Concomitant]
  9. ZIAGEN [Concomitant]
  10. PLAVIX [Concomitant]
  11. AVASTATIN (ATORVASTATIN CALCIUM) [Concomitant]

REACTIONS (2)
  - Renal failure [Not Recovered/Not Resolved]
  - Pruritus generalised [Not Recovered/Not Resolved]
